FAERS Safety Report 4830092-7 (Version None)
Quarter: 2005Q4

REPORT INFORMATION
  Report Type: 
  Country: None (occurrence: None)
  Receive Date: 20051117
  Receipt Date: 20051109
  Transmission Date: 20060501
  Serious: Yes (Hospitalization)
  Sender: FDA-Public Use
  Company Number: KR-AVENTIS-200519859GDDC

PATIENT
  Age: 47 Year
  Sex: Male
  Weight: 70 kg

DRUGS (12)
  1. DOCETAXEL [Suspect]
     Indication: GASTRIC CANCER
     Dosage: DOSE: 62 MG ON DAY 1 AND DAY 8.
     Route: 042
     Dates: start: 20050715, end: 20050722
  2. DOCETAXEL [Suspect]
     Dosage: DOSE: 64 MG ON DAY 1 AND DAY 8.
     Route: 042
     Dates: start: 20050805, end: 20050812
  3. DOCETAXEL [Suspect]
     Dosage: DOSE: 44 MG ON DAY 1 AND DAY 8
     Route: 042
     Dates: start: 20050826, end: 20050902
  4. DOCETAXEL [Suspect]
     Dosage: DOSE: 45 MG ON DAY 1 AND DAY 8.
     Route: 042
     Dates: start: 20050916, end: 20050923
  5. DOCETAXEL [Suspect]
     Dosage: DOSE: 45 MG ON DAY 1 AND DAY 8.
     Route: 042
     Dates: start: 20051007, end: 20051014
  6. DOCETAXEL [Suspect]
     Dosage: DOSE: 45 MG ON DAY 1 AND DAY 8
     Route: 042
     Dates: start: 20051028, end: 20051104
  7. ANTINEOPLASTIC AND IMMUNOSUPPRESSIVE AGENTS [Suspect]
     Indication: GASTRIC CANCER
     Dosage: DOSE: 130 MG/DAY ON DAY 1- DAY 15
     Route: 048
     Dates: start: 20050715, end: 20050729
  8. ANTINEOPLASTIC AND IMMUNOSUPPRESSIVE AGENTS [Suspect]
     Dosage: DOSE: 130 MG /DAY ON DAY 1-DAY 15.
     Route: 048
     Dates: start: 20050805, end: 20050819
  9. ANTINEOPLASTIC AND IMMUNOSUPPRESSIVE AGENTS [Suspect]
     Dosage: DOSE: 100MG/DAY ON DAY 1-15.
     Route: 048
     Dates: start: 20050826, end: 20050909
  10. ANTINEOPLASTIC AND IMMUNOSUPPRESSIVE AGENTS [Suspect]
     Dosage: DOSE: 100 MG/DAY ON DAY 1-15.
     Route: 048
     Dates: start: 20050916, end: 20050930
  11. ANTINEOPLASTIC AND IMMUNOSUPPRESSIVE AGENTS [Suspect]
     Dosage: DOSE: 100 MG/DAY ON DAY 1-15.
     Route: 048
     Dates: start: 20051007, end: 20051021
  12. ANTINEOPLASTIC AND IMMUNOSUPPRESSIVE AGENTS [Suspect]
     Dosage: DOSE: (EXPECTED DOSING) 100 MG/DAY ON DAY 1-15.
     Route: 048
     Dates: start: 20051028, end: 20051111

REACTIONS (5)
  - ANOREXIA [None]
  - INFUSION SITE OEDEMA [None]
  - NEUTROPENIA [None]
  - PHARYNGOLARYNGEAL PAIN [None]
  - PSORIASIS [None]
